FAERS Safety Report 9330790 (Version 1)
Quarter: 2013Q2

REPORT INFORMATION
  Report Type: Spontaneous
  Country: US (occurrence: None)
  Receive Date: 20130604
  Receipt Date: 20130604
  Transmission Date: 20140414
  Serious: Yes (Other)
  Sender: FDA-Public Use
  Company Number: None

PATIENT
  Age: 38 Year
  Sex: Female
  Weight: 85.28 kg

DRUGS (1)
  1. QVAR [Suspect]
     Indication: ASTHMA
     Dates: start: 20130603, end: 20130603

REACTIONS (5)
  - Chest pain [None]
  - Dyspnoea [None]
  - Chest discomfort [None]
  - Chest discomfort [None]
  - Fatigue [None]
